FAERS Safety Report 7970199-9 (Version None)
Quarter: 2011Q4

REPORT INFORMATION
  Report Type: 
  Country: None (occurrence: None)
  Receive Date: 20111212
  Receipt Date: 20111201
  Transmission Date: 20120403
  Serious: Yes (Other)
  Sender: FDA-Public Use
  Company Number: KR-SANOFI-AVENTIS-2011SA078819

PATIENT

DRUGS (1)
  1. TAXOTERE [Suspect]
     Route: 042

REACTIONS (2)
  - NECROSIS [None]
  - LEUKOPENIA [None]
